FAERS Safety Report 7724113-1 (Version None)
Quarter: 2011Q3

REPORT INFORMATION
  Report Type: 
  Country: None (occurrence: None)
  Receive Date: 20110901
  Receipt Date: 20110829
  Transmission Date: 20111222
  Serious: Yes (Hospitalization, Disabling)
  Sender: FDA-Public Use
  Company Number: JP-B.I. PHARMACEUTICALS,INC./RIDGEFIELD-2011-BP-16916NB

PATIENT
  Sex: Male
  Weight: 68.4 kg

DRUGS (3)
  1. PRADAXA [Suspect]
     Indication: CEREBROVASCULAR ACCIDENT PROPHYLAXIS
     Dosage: 220 MG
     Route: 048
     Dates: start: 20110506
  2. LANIRAPID [Concomitant]
     Indication: ATRIAL FIBRILLATION
     Dosage: 0.1 MG
     Route: 048
     Dates: start: 20101001
  3. CONIEL [Concomitant]
     Dosage: 4 MG
     Route: 048
     Dates: start: 20101001

REACTIONS (2)
  - DRUG INEFFECTIVE [None]
  - CEREBRAL INFARCTION [None]
